FAERS Safety Report 10365390 (Version 1)
Quarter: 2014Q3

REPORT INFORMATION
  Report Type: Spontaneous
  Country: US (occurrence: US)
  Receive Date: 20140806
  Receipt Date: 20140806
  Transmission Date: 20150326
  Serious: No
  Sender: FDA-Public Use
  Company Number: US-PFIZER INC-2014218211

PATIENT
  Age: 59 Year
  Sex: Female

DRUGS (12)
  1. PAXIL [Suspect]
     Active Substance: PAROXETINE HYDROCHLORIDE
     Dosage: UNK
  2. AMMONIA. [Suspect]
     Active Substance: AMMONIA
     Dosage: UNK
  3. IBUPROFEN. [Suspect]
     Active Substance: IBUPROFEN
     Dosage: UNK
  4. TYLENOL [Suspect]
     Active Substance: ACETAMINOPHEN
     Dosage: UNK
  5. XANAX [Suspect]
     Active Substance: ALPRAZOLAM
     Dosage: UNK
  6. LYRICA [Suspect]
     Active Substance: PREGABALIN
     Dosage: UNK
  7. CHLORIDE [Suspect]
     Active Substance: CHLORIDE ION
     Dosage: UNK
  8. TETRACYCLINE HCL [Suspect]
     Active Substance: TETRACYCLINE HYDROCHLORIDE
     Dosage: UNK
  9. CODEINE [Suspect]
     Active Substance: CODEINE
     Dosage: UNK
  10. PREDNISONE. [Suspect]
     Active Substance: PREDNISONE
     Dosage: UNK
  11. ACTONEL [Suspect]
     Active Substance: RISEDRONATE SODIUM
     Dosage: UNK
  12. RITALIN [Suspect]
     Active Substance: METHYLPHENIDATE HYDROCHLORIDE
     Dosage: UNK

REACTIONS (10)
  - Contrast media allergy [Unknown]
  - Allergy to animal [Unknown]
  - Lip swelling [Unknown]
  - Swelling face [Unknown]
  - House dust allergy [Unknown]
  - Food allergy [Unknown]
  - Mycotic allergy [Unknown]
  - Seasonal allergy [Unknown]
  - Drug hypersensitivity [Unknown]
  - Allergy to plants [Unknown]
